FAERS Safety Report 11811344 (Version 4)
Quarter: 2017Q2

REPORT INFORMATION
  Report Type: Report from Study
  Country: PT (occurrence: PT)
  Receive Date: 20151208
  Receipt Date: 20170508
  Transmission Date: 20170829
  Serious: Yes (Hospitalization, Other)
  Sender: FDA-Public Use
  Company Number: PT-GILEAD-2015-0183186

PATIENT
  Age: 74 Year
  Sex: Male

DRUGS (6)
  1. RITUXIMAB [Concomitant]
     Active Substance: RITUXIMAB
     Indication: CHRONIC LYMPHOCYTIC LEUKAEMIA
     Dosage: UNK
     Dates: start: 2015
  2. IDELALISIB [Suspect]
     Active Substance: IDELALISIB
     Dosage: 100 MG, BID
     Route: 048
     Dates: start: 201602, end: 201608
  3. IDELALISIB [Suspect]
     Active Substance: IDELALISIB
     Indication: CHRONIC LYMPHOCYTIC LEUKAEMIA
     Dosage: 150 MG, BID
     Route: 065
     Dates: start: 20150908, end: 20151116
  4. BISOPROLOL [Concomitant]
     Active Substance: BISOPROLOL
     Dosage: UNK
     Dates: end: 201511
  5. IDELALISIB [Suspect]
     Active Substance: IDELALISIB
     Dosage: 100 MG, BID
     Route: 048
     Dates: start: 201601, end: 201601
  6. IDELALISIB [Suspect]
     Active Substance: IDELALISIB
     Dosage: 150 MG, BID
     Route: 048
     Dates: start: 201608

REACTIONS (10)
  - Pulmonary embolism [Recovered/Resolved]
  - Dyspnoea [Unknown]
  - Computerised tomogram abnormal [Unknown]
  - Alanine aminotransferase increased [Recovered/Resolved]
  - Pyrexia [Unknown]
  - Transaminases increased [Recovered/Resolved]
  - Therapy partial responder [Not Recovered/Not Resolved]
  - Depression [Unknown]
  - Hypoxia [Unknown]
  - Aspartate aminotransferase increased [Recovered/Resolved]

NARRATIVE: CASE EVENT DATE: 201511
